FAERS Safety Report 11218133 (Version 1)
Quarter: 2015Q2

REPORT INFORMATION
  Report Type: Spontaneous
  Country: US (occurrence: US)
  Receive Date: 20150625
  Receipt Date: 20150625
  Transmission Date: 20150821
  Serious: No
  Sender: FDA-Public Use
  Company Number: US-BIOGENIDEC-2015BI086195

PATIENT
  Age: 62 Year
  Sex: Female

DRUGS (1)
  1. TECFIDERA [Suspect]
     Active Substance: DIMETHYL FUMARATE
     Indication: MULTIPLE SCLEROSIS
     Dates: start: 20140418, end: 20150530

REACTIONS (5)
  - Decreased immune responsiveness [Unknown]
  - Abdominal discomfort [Recovered/Resolved]
  - Bronchitis [Recovered/Resolved]
  - Atypical pneumonia [Recovered/Resolved]
  - Herpes zoster [Not Recovered/Not Resolved]

NARRATIVE: CASE EVENT DATE: 201505
